FAERS Safety Report 7384217-2 (Version None)
Quarter: 2011Q1

REPORT INFORMATION
  Report Type: 
  Country: None (occurrence: None)
  Receive Date: 20110330
  Receipt Date: 20110317
  Transmission Date: 20110831
  Serious: Yes (Other)
  Sender: FDA-Public Use
  Company Number: US-WATSON-2011-03887

PATIENT
  Age: 23 Year
  Sex: Female

DRUGS (1)
  1. BETAMETHASONE SODIUM PHOSPHATE [Suspect]
     Indication: PREMATURE RUPTURE OF MEMBRANES
     Dosage: 12 MG, SINGLE
     Route: 030

REACTIONS (2)
  - PARALYSIS [None]
  - HYPOKALAEMIA [None]
